FAERS Safety Report 7372128-8 (Version None)
Quarter: 2011Q1

REPORT INFORMATION
  Report Type: 
  Country: None (occurrence: None)
  Receive Date: 20110324
  Receipt Date: 20110317
  Transmission Date: 20110831
  Serious: Yes (Death, Other)
  Sender: FDA-Public Use
  Company Number: US-TEVA-267223USA

PATIENT
  Sex: Male

DRUGS (7)
  1. CLOZAPINE [Suspect]
     Indication: SCHIZOPHRENIA
     Route: 048
  2. NICOTINIC ACID [Concomitant]
  3. LEVOTHYROXINE SODIUM [Concomitant]
  4. ACETYLSALICYLIC ACID [Concomitant]
  5. FERROUS SULFATE TAB [Concomitant]
  6. TOPIRAMATE [Concomitant]
  7. TOCOPHEROL CONCENTRATE CAP [Concomitant]

REACTIONS (4)
  - MYOCARDIAL INFARCTION [None]
  - CARDIAC ARREST [None]
  - DEATH [None]
  - CONVULSION [None]
